FAERS Safety Report 21103722 (Version 5)
Quarter: 2022Q3

REPORT INFORMATION
  Report Type: Report from Study
  Country: US (occurrence: US)
  Receive Date: 20220720
  Receipt Date: 20220930
  Transmission Date: 20221027
  Serious: Yes (Hospitalization)
  Sender: FDA-Public Use
  Company Number: US-BIOGEN-2022BI01135188

PATIENT
  Age: 44 Year
  Sex: Male

DRUGS (3)
  1. VUMERITY [Suspect]
     Active Substance: DIROXIMEL FUMARATE
     Indication: Multiple sclerosis
     Dosage: TITRATION DOSE, TAKE 1 CAPSULE (231MG) BY MOUTH 2 TIMES A DAY FOR 7 DAYS
     Route: 050
     Dates: start: 20220615, end: 202206
  2. VUMERITY [Suspect]
     Active Substance: DIROXIMEL FUMARATE
     Dosage: 2 CAPSULES (462MG) BY MOUTH 2 TIMES A DAY
     Route: 050
     Dates: start: 20220622
  3. VUMERITY [Suspect]
     Active Substance: DIROXIMEL FUMARATE
     Route: 050

REACTIONS (11)
  - Haemoglobin decreased [Unknown]
  - Gastric ulcer [Unknown]
  - Headache [Not Recovered/Not Resolved]
  - Neck pain [Not Recovered/Not Resolved]
  - Faeces soft [Not Recovered/Not Resolved]
  - Product dose omission issue [Unknown]
  - Hemiparesis [Unknown]
  - Abdominal discomfort [Unknown]
  - Flatulence [Unknown]
  - Flushing [Not Recovered/Not Resolved]
  - Abdominal pain upper [Not Recovered/Not Resolved]

NARRATIVE: CASE EVENT DATE: 20220601
